FAERS Safety Report 6858976-9 (Version None)
Quarter: 2010Q3

REPORT INFORMATION
  Report Type: 
  Country: None (occurrence: None)
  Receive Date: 20100719
  Receipt Date: 20080219
  Transmission Date: 20110219
  Serious: No
  Sender: FDA-Public Use
  Company Number: US-PFIZER INC-2008017469

PATIENT
  Sex: Female
  Weight: 72.727 kg

DRUGS (5)
  1. CHANTIX [Suspect]
     Indication: SMOKING CESSATION THERAPY
     Dates: start: 20080211
  2. XANAX [Concomitant]
     Indication: NERVOUSNESS
  3. NORTRIPTYLINE [Concomitant]
     Indication: SLEEP DISORDER
  4. PROZAC [Concomitant]
     Indication: NERVOUSNESS
  5. SOMA [Concomitant]

REACTIONS (1)
  - ABDOMINAL PAIN [None]
